FAERS Safety Report 5128195-5 (Version None)
Quarter: 2006Q4

REPORT INFORMATION
  Report Type: 
  Country: None (occurrence: None)
  Receive Date: 20061017
  Receipt Date: 20061003
  Transmission Date: 20070319
  Serious: Yes (Other)
  Sender: FDA-Public Use
  Company Number: PHFR2006GB02960

PATIENT
  Age: 56 Year
  Sex: Female

DRUGS (3)
  1. PAMIDRONATE DISODIUM [Suspect]
     Indication: HYPERCALCAEMIA OF MALIGNANCY
     Dosage: 15 MG, QD
     Dates: start: 20060817, end: 20060817
  2. PAMIDRONATE DISODIUM [Suspect]
     Dosage: 30 MG, QD
     Dates: start: 20060831, end: 20060831
  3. PAMIDRONATE DISODIUM [Suspect]
     Dosage: 90 MG, QD
     Dates: start: 20060903, end: 20060903

REACTIONS (2)
  - DRUG INEFFECTIVE [None]
  - HYPERCALCAEMIA [None]
